FAERS Safety Report 13701655 (Version 1)
Quarter: 2017Q2

REPORT INFORMATION
  Report Type: Spontaneous
  Country: US (occurrence: US)
  Receive Date: 20170629
  Receipt Date: 20170629
  Transmission Date: 20170830
  Serious: Yes (Hospitalization)
  Sender: FDA-Public Use
  Company Number: None

PATIENT
  Age: 59 Year
  Sex: Female

DRUGS (13)
  1. GABAPENTIN. [Concomitant]
     Active Substance: GABAPENTIN
  2. JANUAVIA [Concomitant]
  3. METFORMIN [Concomitant]
     Active Substance: METFORMIN HYDROCHLORIDE
  4. VENLAFAXINE [Concomitant]
     Active Substance: VENLAFAXINE HYDROCHLORIDE
  5. LORAZEPAM. [Concomitant]
     Active Substance: LORAZEPAM
  6. ENBREL [Suspect]
     Active Substance: ETANERCEPT
     Indication: PSORIASIS
     Dosage: 50MG WEEKLY SQ
     Route: 058
     Dates: start: 20170114
  7. OMEPRAZOLE. [Concomitant]
     Active Substance: OMEPRAZOLE
  8. LUNESTA [Concomitant]
     Active Substance: ESZOPICLONE
  9. GLIPIZIDE. [Concomitant]
     Active Substance: GLIPIZIDE
  10. SERTRALINE [Concomitant]
     Active Substance: SERTRALINE HYDROCHLORIDE
  11. INVOKANA [Concomitant]
     Active Substance: CANAGLIFLOZIN
  12. MIRTAZAPINE. [Concomitant]
     Active Substance: MIRTAZAPINE
  13. PRAMIPEXOLE. [Concomitant]
     Active Substance: PRAMIPEXOLE

REACTIONS (2)
  - Drug dose omission [None]
  - Hernia repair [None]

NARRATIVE: CASE EVENT DATE: 20170619
